FAERS Safety Report 24318077 (Version 1)
Quarter: 2024Q3

REPORT INFORMATION
  Report Type: Spontaneous
  Country: AU (occurrence: AU)
  Receive Date: 20240913
  Receipt Date: 20240913
  Transmission Date: 20241016
  Serious: Yes (Death, Other)
  Sender: NOVARTIS
  Company Number: AU-002147023-NVSC2020AU371142

PATIENT

DRUGS (1)
  1. KYMRIAH [Suspect]
     Active Substance: TISAGENLECLEUCEL
     Indication: Acute lymphocytic leukaemia
     Dosage: UNK
     Route: 042
     Dates: start: 20200217

REACTIONS (4)
  - Acute lymphocytic leukaemia [Fatal]
  - Malignant neoplasm progression [Fatal]
  - Acute lymphocytic leukaemia recurrent [Unknown]
  - B-cell aplasia [Unknown]
